FAERS Safety Report 13864643 (Version 1)
Quarter: 2017Q3

REPORT INFORMATION
  Report Type: Report from Study
  Country: BR (occurrence: BR)
  Receive Date: 20170814
  Receipt Date: 20170814
  Transmission Date: 20171127
  Serious: Yes (Other)
  Sender: FDA-Public Use
  Company Number: PHHY2017BR118876

PATIENT
  Sex: Female
  Weight: 47.5 kg

DRUGS (1)
  1. TRAVATAN Z [Suspect]
     Active Substance: TRAVOPROST
     Indication: INTRAOCULAR PRESSURE INCREASED
     Dosage: 1 OT, QD (ONCE IN EVENING)
     Route: 047

REACTIONS (3)
  - Visual impairment [Unknown]
  - Discomfort [Unknown]
  - Cataract [Unknown]
